FAERS Safety Report 6678938-4 (Version None)
Quarter: 2010Q2

REPORT INFORMATION
  Report Type: 
  Country: None (occurrence: None)
  Receive Date: 20100402
  Receipt Date: 20090516
  Transmission Date: 20101027
  Serious: Yes (Other)
  Sender: FDA-Public Use
  Company Number: 2009192449

PATIENT
  Age: 62 Year
  Sex: Male

DRUGS (1)
  1. ARGATROBAN [Suspect]
     Indication: HEPARIN-INDUCED THROMBOCYTOPENIA
     Dosage: 0.05 ML/MIN, 1 IN 1 MIN, INTRAVENOUS
     Route: 042
     Dates: start: 20090328

REACTIONS (1)
  - INTERNATIONAL NORMALISED RATIO INCREASED [None]
